FAERS Safety Report 5563385-9 (Version None)
Quarter: 2007Q4

REPORT INFORMATION
  Report Type: 
  Country: None (occurrence: None)
  Receive Date: 20071217
  Receipt Date: 20070612
  Transmission Date: 20080405
  Serious: No
  Sender: FDA-Public Use
  Company Number: US-ASTRAZENECA-2007UW07317

PATIENT
  Sex: Female

DRUGS (5)
  1. CRESTOR [Suspect]
     Indication: BLOOD CHOLESTEROL INCREASED
     Route: 048
     Dates: start: 20050101
  2. DIOVAN [Suspect]
     Dosage: SWITCHED TO LOTREL
  3. ATENOLOL [Concomitant]
  4. LASIX [Concomitant]
  5. LOTREL [Concomitant]

REACTIONS (1)
  - ALOPECIA [None]
